FAERS Safety Report 13946298 (Version 2)
Quarter: 2017Q4

REPORT INFORMATION
  Report Type: Spontaneous
  Country: US (occurrence: US)
  Receive Date: 20170907
  Receipt Date: 20171113
  Transmission Date: 20180320
  Serious: Yes (Other)
  Sender: FDA-Public Use
  Company Number: US-BAYER-2017-171208

PATIENT
  Age: 25 Year
  Sex: Female
  Weight: 53.06 kg

DRUGS (1)
  1. MIRENA [Suspect]
     Active Substance: LEVONORGESTREL
     Indication: CONTRACEPTION
     Dosage: 20 MCG/24HR, CONT
     Route: 015
     Dates: start: 20110831, end: 20160627

REACTIONS (2)
  - Device issue [None]
  - Uterine perforation [None]

NARRATIVE: CASE EVENT DATE: 201212
